FAERS Safety Report 4475649-0 (Version None)
Quarter: 2004Q4

REPORT INFORMATION
  Report Type: 
  Country: None (occurrence: None)
  Receive Date: 20041012
  Receipt Date: 20040924
  Transmission Date: 20050328
  Serious: Yes (Other)
  Sender: FDA-Public Use
  Company Number: 8961

PATIENT
  Sex: Male

DRUGS (1)
  1. METHOTREXATE [Suspect]
     Dosage: 4 G/M2 IV
     Route: 042
     Dates: end: 20040501

REACTIONS (2)
  - CONDITION AGGRAVATED [None]
  - TRANSAMINASES INCREASED [None]
